FAERS Safety Report 9458710 (Version 2)
Quarter: 2013Q3

REPORT INFORMATION
  Report Type: Spontaneous
  Country: US (occurrence: US)
  Receive Date: 20130814
  Receipt Date: 20130906
  Transmission Date: 20140515
  Serious: Yes (Hospitalization, Other)
  Sender: FDA-Public Use
  Company Number: US-TEVA-426164USA

PATIENT
  Age: 25 Year
  Sex: Female
  Weight: 74 kg

DRUGS (1)
  1. PARAGARD 380A [Suspect]
     Indication: CONTRACEPTION
     Route: 015
     Dates: start: 20120810, end: 20130702

REACTIONS (6)
  - Uterine perforation [Not Recovered/Not Resolved]
  - Medical device complication [Not Recovered/Not Resolved]
  - Embedded device [Recovered/Resolved]
  - Dyspareunia [Not Recovered/Not Resolved]
  - Device expulsion [Not Recovered/Not Resolved]
  - Device breakage [Unknown]
